FAERS Safety Report 5399152-9 (Version None)
Quarter: 2007Q3

REPORT INFORMATION
  Report Type: 
  Country: None (occurrence: None)
  Receive Date: 20070725
  Receipt Date: 20070725
  Transmission Date: 20080115
  Serious: Yes (Hospitalization)
  Sender: FDA-Public Use
  Company Number: None

PATIENT
  Sex: Male
  Weight: 88.905 kg

DRUGS (2)
  1. LORAZEPAM [Suspect]
     Indication: AGITATION
     Dosage: 1MG ONCE PO
     Route: 048
     Dates: start: 20070623, end: 20070623
  2. QUETIAPINE FUMARATE [Suspect]
     Indication: THINKING ABNORMAL
     Dosage: 50MG QHS PO
     Route: 048
     Dates: start: 20070621, end: 20070623

REACTIONS (3)
  - LOSS OF CONSCIOUSNESS [None]
  - SOMNOLENCE [None]
  - STUPOR [None]
